FAERS Safety Report 8124723-6 (Version None)
Quarter: 2012Q1

REPORT INFORMATION
  Report Type: 
  Country: None (occurrence: None)
  Receive Date: 20120209
  Receipt Date: 20120201
  Transmission Date: 20120608
  Serious: Yes (Hospitalization)
  Sender: FDA-Public Use
  Company Number: US-BAYER-2011-041924

PATIENT
  Age: 42 Year
  Sex: Female
  Weight: 63 kg

DRUGS (9)
  1. XANAX [Concomitant]
     Dosage: UNK
     Dates: start: 20010101, end: 20100101
  2. LORAZEPAM [Concomitant]
     Dosage: UNK
     Dates: start: 20060101, end: 20070101
  3. YAZ [Suspect]
     Dosage: UNK
     Dates: start: 20060601, end: 20060801
  4. TRAZODONE HCL [Concomitant]
  5. ATIVAN [Concomitant]
  6. IBUPROFEN [Concomitant]
     Dosage: UNK
     Dates: start: 20020101, end: 20070101
  7. YASMIN [Suspect]
     Indication: PREMENSTRUAL SYNDROME
     Dosage: UNK
     Dates: start: 20060601, end: 20060826
  8. LORTAB [Concomitant]
  9. LEXAPRO [Concomitant]
     Dosage: UNK
     Dates: start: 20060101

REACTIONS (8)
  - PULMONARY EMBOLISM [None]
  - DYSPNOEA [None]
  - EMOTIONAL DISTRESS [None]
  - GENERAL PHYSICAL HEALTH DETERIORATION [None]
  - PAIN [None]
  - ANXIETY [None]
  - CHEST PAIN [None]
  - INJURY [None]
